FAERS Safety Report 7792627-4 (Version None)
Quarter: 2011Q4

REPORT INFORMATION
  Report Type: 
  Country: None (occurrence: None)
  Receive Date: 20111003
  Receipt Date: 20110921
  Transmission Date: 20120403
  Serious: No
  Sender: FDA-Public Use
  Company Number: US-B.I. PHARMACEUTICALS,INC./RIDGEFIELD-2011-BP-20553BP

PATIENT
  Age: 60 Year
  Sex: Male

DRUGS (7)
  1. DIGOXIN [Concomitant]
  2. SPIRIVA [Concomitant]
     Dosage: 18 MCG
  3. CARDIZEM [Concomitant]
  4. PRADAXA [Suspect]
     Indication: ATRIAL FIBRILLATION
     Dosage: 300 MG
     Route: 048
     Dates: start: 20110817
  5. COUMADIN [Concomitant]
     Dosage: 5 MG
  6. ALLOPURINOL [Concomitant]
     Dosage: 100 MG
  7. ADVAIR DISKUS 100/50 [Concomitant]

REACTIONS (3)
  - DIZZINESS [None]
  - HEADACHE [None]
  - ASTHENIA [None]
